FAERS Safety Report 11933340 (Version 1)
Quarter: 2016Q1

REPORT INFORMATION
  Report Type: Spontaneous
  Country: US (occurrence: US)
  Receive Date: 20160121
  Receipt Date: 20160121
  Transmission Date: 20160526
  Serious: Yes (Hospitalization)
  Sender: FDA-Public Use
  Company Number: US-ROCHE-1671294

PATIENT
  Sex: Male
  Weight: 76.27 kg

DRUGS (1)
  1. ESBRIET [Suspect]
     Active Substance: PIRFENIDONE
     Indication: IDIOPATHIC PULMONARY FIBROSIS
     Route: 048
     Dates: start: 20150219

REACTIONS (4)
  - Hypothyroidism [Unknown]
  - Chest pain [Unknown]
  - Atrial fibrillation [Unknown]
  - Pneumonia [Unknown]
